FAERS Safety Report 11146291 (Version 1)
Quarter: 2015Q2

REPORT INFORMATION
  Report Type: Spontaneous
  Country: US (occurrence: US)
  Receive Date: 20150528
  Receipt Date: 20150528
  Transmission Date: 20150821
  Serious: No
  Sender: FDA-Public Use
  Company Number: US-PFIZER INC-2015175064

PATIENT
  Sex: Female

DRUGS (1)
  1. HYDROCORTISONE. [Suspect]
     Active Substance: HYDROCORTISONE
     Dosage: 5 MG

REACTIONS (8)
  - Product quality issue [Unknown]
  - Body temperature decreased [Recovered/Resolved]
  - Constipation [Unknown]
  - Poor quality drug administered [Unknown]
  - Abdominal pain upper [Unknown]
  - Asthenia [Unknown]
  - Malaise [Unknown]
  - Hormone level abnormal [Unknown]
